FAERS Safety Report 16051668 (Version 6)
Quarter: 2020Q2

REPORT INFORMATION
  Report Type: Spontaneous
  Country: US (occurrence: US)
  Receive Date: 20190308
  Receipt Date: 20200402
  Transmission Date: 20200713
  Serious: No
  Sender: FDA-Public Use
  Company Number: US-PFIZER INC-2017195251

PATIENT
  Age: 11 Year
  Sex: Female
  Weight: 33 kg

DRUGS (3)
  1. GENOTROPIN [Suspect]
     Active Substance: SOMATROPIN
     Indication: GROWTH HORMONE DEFICIENCY
     Dosage: 1.6MG AND 1.4MG EVERY OTHER DAY [1.4MG ALTERNATING WITH 1.6MG, 7 DAYS A WEEK]
     Route: 058
     Dates: start: 20130316
  2. LEVOTHYROXINE. [Concomitant]
     Active Substance: LEVOTHYROXINE
     Dosage: 62.5 UG, DAILY
  3. METHYLPHENIDATE. [Concomitant]
     Active Substance: METHYLPHENIDATE
     Dosage: 18 MG, 1X/DAY
     Route: 048
     Dates: start: 201612

REACTIONS (3)
  - Vomiting [Unknown]
  - Product dose omission [Unknown]
  - Device issue [Unknown]
